FAERS Safety Report 8923502 (Version 1)
Quarter: 2012Q4

REPORT INFORMATION
  Report Type: 
  Country: NL (occurrence: NL)
  Receive Date: 20121123
  Receipt Date: 20121123
  Transmission Date: 20130627
  Serious: Yes (Other)
  Sender: FDA-Public Use
  Company Number: NL-PFIZER INC-2012291825

PATIENT
  Age: 69 Year
  Sex: Female
  Weight: 62 kg

DRUGS (2)
  1. CHAMPIX [Suspect]
     Indication: SMOKING CESSATION THERAPY
     Dosage: 1 DF, 2x/day
     Dates: start: 20120904, end: 20121029
  2. SIMVASTATIN [Concomitant]
     Dosage: 40 mg, 1x/day
     Dates: start: 2009, end: 20121019

REACTIONS (1)
  - Jaundice [Recovering/Resolving]
